FAERS Safety Report 10397285 (Version 1)
Quarter: 2014Q3

REPORT INFORMATION
  Report Type: Spontaneous
  Country: NO (occurrence: NO)
  Receive Date: 20140820
  Receipt Date: 20140820
  Transmission Date: 20150326
  Serious: Yes (Death, Hospitalization, Other)
  Sender: FDA-Public Use
  Company Number: PHHY2014NO096913

PATIENT
  Age: 83 Year
  Sex: Male

DRUGS (13)
  1. PREDNISOLON [Concomitant]
     Active Substance: PREDNISOLONE
     Indication: ARTHRITIS
     Dosage: 7.5 MG, QD
  2. FOLIC ACID. [Concomitant]
     Active Substance: FOLIC ACID
     Indication: VITAMIN SUPPLEMENTATION
     Dosage: 1 MG, QD
  3. NYCOPLUS [Concomitant]
     Indication: VITAMIN SUPPLEMENTATION
     Dosage: 1 MG, QD
  4. SIMVASTATIN. [Concomitant]
     Active Substance: SIMVASTATIN
     Indication: BLOOD CHOLESTEROL
     Dosage: 40 MG, QD
     Route: 048
  5. NORSPAN [Concomitant]
     Active Substance: BUPRENORPHINE
     Indication: PAIN
     Dosage: 10 UG, QW
  6. TRIATEC [Concomitant]
     Active Substance: RAMIPRIL
     Indication: BLOOD PRESSURE
     Dosage: 10 MG, QD
     Route: 048
  7. METOPROLOL SANDOZ [Concomitant]
     Active Substance: METOPROLOL
     Indication: CARDIAC DISORDER
     Dosage: 100 MG, QD
     Route: 048
  8. ATROVENT [Concomitant]
     Active Substance: IPRATROPIUM BROMIDE
     Indication: LUNG DISORDER
     Dosage: 20 UG, 1-2 DOSES 4X/DAY (INHALATION
     Route: 055
  9. MOVICOL [Concomitant]
     Active Substance: POLYETHYLENE GLYCOL 3350\POTASSIUM CHLORIDE\SODIUM BICARBONATE\SODIUM CHLORIDE
     Indication: CONSTIPATION
     Dosage: 1 DF, QD
  10. METHOTREXATE [Suspect]
     Active Substance: METHOTREXATE
     Dosage: 2.5 MG, X 6 EVERY DAY
     Dates: start: 20121031, end: 20121105
  11. FRAGMIN [Concomitant]
     Active Substance: DALTEPARIN SODIUM
     Indication: ANTICOAGULANT THERAPY
     Dosage: 2500 IU, QD
     Route: 058
  12. PARACET [Concomitant]
     Active Substance: ACETAMINOPHEN
     Indication: PAIN
     Dosage: 1 G, BID
     Route: 048
  13. METHOTREXATE [Suspect]
     Active Substance: METHOTREXATE
     Indication: RHEUMATOID ARTHRITIS
     Dosage: 15 MG, QW (3 TABLETS-7.5MG MORNING AND EVENING ON THURSDAY
     Route: 048

REACTIONS (22)
  - Respiratory tract infection [Fatal]
  - Cheyne-Stokes respiration [Unknown]
  - Oedema peripheral [Unknown]
  - Hypoventilation [Recovered/Resolved]
  - Hepatic failure [Recovered/Resolved]
  - Pneumonia [Unknown]
  - Chronic obstructive pulmonary disease [Fatal]
  - Rheumatoid arthritis [Recovered/Resolved]
  - Skin haemorrhage [Unknown]
  - Hepatic congestion [Unknown]
  - Urinary tract infection [Unknown]
  - Inappropriate schedule of drug administration [Fatal]
  - Cholelithiasis [Unknown]
  - Anal haemorrhage [Unknown]
  - Neutropenia [Fatal]
  - Stomatitis [Fatal]
  - Accidental overdose [Fatal]
  - Aplastic anaemia [Fatal]
  - Epistaxis [Unknown]
  - Thrombocytopenia [Fatal]
  - Disease complication [Fatal]
  - Accidental poisoning [Fatal]

NARRATIVE: CASE EVENT DATE: 201210
